FAERS Safety Report 6306241-0 (Version None)
Quarter: 2009Q3

REPORT INFORMATION
  Report Type: 
  Country: None (occurrence: None)
  Receive Date: 20090810
  Receipt Date: 20090731
  Transmission Date: 20100115
  Serious: Yes (Hospitalization)
  Sender: FDA-Public Use
  Company Number: 2009-00360

PATIENT
  Age: 80 Year
  Sex: Male
  Weight: 82.1 kg

DRUGS (13)
  1. VELCADE [Suspect]
     Indication: MULTIPLE MYELOMA
     Dosage: 1.3MG/M2, IV BOLUS
     Route: 040
     Dates: start: 20090120, end: 20090127
  2. THALIDOMIDE [Suspect]
     Indication: MULTIPLE MYELOMA
     Dosage: 100 MG, ORAL
     Route: 048
     Dates: start: 20090120, end: 20090128
  3. DEXAMETHASONE TAB [Suspect]
     Indication: MULTIPLE MYELOMA
     Dosage: 20 MG, ORAL
     Route: 048
     Dates: start: 20090120, end: 20090128
  4. DETROL [Concomitant]
  5. EZETIMIBE [Concomitant]
  6. LISINOPRIL [Concomitant]
  7. DILTIAZEM [Concomitant]
  8. PROSCAR [Concomitant]
  9. FLOMAX [Concomitant]
  10. ACIPHEX [Concomitant]
  11. COUMADIN [Concomitant]
  12. LEXAPRO [Concomitant]
  13. COLESEVELAM (COLESEVELAM) [Concomitant]

REACTIONS (41)
  - ALANINE AMINOTRANSFERASE INCREASED [None]
  - AORTIC VALVE CALCIFICATION [None]
  - AORTIC VALVE INCOMPETENCE [None]
  - AORTIC VALVE STENOSIS [None]
  - ARTHRALGIA [None]
  - ARTHROPATHY [None]
  - BLOOD ALBUMIN DECREASED [None]
  - BLOOD PRESSURE DIASTOLIC DECREASED [None]
  - BODY TEMPERATURE INCREASED [None]
  - BUNDLE BRANCH BLOCK RIGHT [None]
  - BURNS FIRST DEGREE [None]
  - CARDIOMEGALY [None]
  - DILATATION VENTRICULAR [None]
  - ERYTHEMA [None]
  - GAIT DISTURBANCE [None]
  - HAEMATOCRIT INCREASED [None]
  - HAEMOGLOBIN INCREASED [None]
  - HEAT RASH [None]
  - INJURY [None]
  - INTERNATIONAL NORMALISED RATIO INCREASED [None]
  - INTERVERTEBRAL DISC PROTRUSION [None]
  - JOINT SWELLING [None]
  - LABORATORY TEST ABNORMAL [None]
  - LYMPHOCYTE PERCENTAGE INCREASED [None]
  - MOBILITY DECREASED [None]
  - MUSCULAR WEAKNESS [None]
  - NEURALGIA [None]
  - NEUROPATHY PERIPHERAL [None]
  - NEUTROPHIL PERCENTAGE INCREASED [None]
  - OEDEMA [None]
  - PAIN [None]
  - PAIN IN EXTREMITY [None]
  - PLATELET COUNT DECREASED [None]
  - PROTHROMBIN TIME PROLONGED [None]
  - QRS AXIS ABNORMAL [None]
  - RADICULOPATHY [None]
  - RESPIRATORY RATE INCREASED [None]
  - RIB DEFORMITY [None]
  - SPINAL OSTEOARTHRITIS [None]
  - SPONDYLOLISTHESIS [None]
  - THROMBOSIS [None]
